FAERS Safety Report 17018338 (Version 2)
Quarter: 2019Q4

REPORT INFORMATION
  Report Type: Spontaneous
  Country: FR (occurrence: FR)
  Receive Date: 20191111
  Receipt Date: 20191231
  Transmission Date: 20200122
  Serious: Yes (Other)
  Sender: FDA-Public Use
  Company Number: NVSC2019FR029014

PATIENT
  Age: 38 Year
  Sex: Female
  Weight: 58 kg

DRUGS (6)
  1. TOBREX [Suspect]
     Active Substance: TOBRAMYCIN
     Dosage: 1 GTT, QID AT LEAST UNTIL AROUND 09 NOV 2019
     Route: 047
  2. TOBREX [Suspect]
     Active Substance: TOBRAMYCIN
     Indication: CORNEAL ABSCESS
     Dosage: 1 GTT, 8QD DURING 2 DAYS
     Route: 047
     Dates: start: 20191025, end: 20191106
  3. CILOXAN [Suspect]
     Active Substance: CIPROFLOXACIN HYDROCHLORIDE
     Dosage: 1 GTT, 6QD DURING 2 DAYS
     Route: 047
  4. TOBREX [Suspect]
     Active Substance: TOBRAMYCIN
     Dosage: 1 GTT, 6QD DURING 2 DAYS
     Route: 047
  5. CILOXAN [Suspect]
     Active Substance: CIPROFLOXACIN HYDROCHLORIDE
     Indication: CORNEAL ABSCESS
     Dosage: 1 GTT, 8QD DURING 2 DAYS
     Route: 047
     Dates: start: 20191025, end: 20191106
  6. CILOXAN [Suspect]
     Active Substance: CIPROFLOXACIN HYDROCHLORIDE
     Dosage: 1 GTT, QID DAY AT LEAST UNTIL AROUND 09 NOV 2019
     Route: 047

REACTIONS (4)
  - Visual acuity reduced [Recovered/Resolved]
  - Photophobia [Unknown]
  - Vision blurred [Recovered/Resolved]
  - Ocular discomfort [Recovered/Resolved]

NARRATIVE: CASE EVENT DATE: 20191027
